FAERS Safety Report 10221646 (Version 2)
Quarter: 2014Q3

REPORT INFORMATION
  Report Type: Spontaneous
  Country: NL (occurrence: NL)
  Receive Date: 20140606
  Receipt Date: 20140729
  Transmission Date: 20150326
  Serious: Yes (Other)
  Sender: FDA-Public Use
  Company Number: NL-PFIZER INC-2014151169

PATIENT
  Age: 68 Year
  Sex: Male

DRUGS (1)
  1. ATORVASTATIN CALCIUM. [Suspect]
     Active Substance: ATORVASTATIN CALCIUM

REACTIONS (7)
  - Malaise [Unknown]
  - Diarrhoea [Recovered/Resolved]
  - Diarrhoea haemorrhagic [Unknown]
  - Back pain [Recovering/Resolving]
  - Rash [Unknown]
  - Vomiting [Unknown]
  - Abnormal loss of weight [Unknown]
